FAERS Safety Report 9736980 (Version 1)
Quarter: 2013Q4

REPORT INFORMATION
  Report Type: Spontaneous
  Country: ES (occurrence: ES)
  Receive Date: 20131206
  Receipt Date: 20131206
  Transmission Date: 20140711
  Serious: Yes (Hospitalization)
  Sender: FDA-Public Use
  Company Number: PHHY2013ES139750

PATIENT
  Age: 70 Year
  Sex: Male

DRUGS (2)
  1. METFORMIN [Suspect]
     Indication: HYPERTENSION
     Dosage: 850 MG, 8 H
  2. GLICLAZIDE [Concomitant]

REACTIONS (13)
  - Renal impairment [Unknown]
  - Blood urea increased [Unknown]
  - Blood creatinine increased [Unknown]
  - Electrocardiogram T wave peaked [Unknown]
  - Lactic acidosis [Unknown]
  - Metabolic acidosis [Unknown]
  - Blood lactic acid increased [Unknown]
  - Anion gap increased [Unknown]
  - Blood pH decreased [Unknown]
  - Hyperkalaemia [Unknown]
  - Blood bicarbonate decreased [Unknown]
  - Discomfort [Unknown]
  - Vomiting [Unknown]
